FAERS Safety Report 25823059 (Version 1)
Quarter: 2025Q3

REPORT INFORMATION
  Report Type: Spontaneous
  Country: US (occurrence: US)
  Receive Date: 20250919
  Receipt Date: 20250919
  Transmission Date: 20251021
  Serious: No
  Sender: TAKEDA
  Company Number: US-TAKEDA-2025TUS079455

PATIENT
  Age: 11 Year
  Sex: Female
  Weight: 46.03 kg

DRUGS (4)
  1. CUVITRU [Suspect]
     Active Substance: HUMAN IMMUNOGLOBULIN G
     Indication: Immunodeficiency common variable
     Dosage: 6 GRAM, 1/WEEK
     Dates: start: 202501
  2. CUVITRU [Suspect]
     Active Substance: HUMAN IMMUNOGLOBULIN G
  3. CUVITRU [Suspect]
     Active Substance: HUMAN IMMUNOGLOBULIN G
  4. DIPHENHYDRAMINE [Concomitant]
     Active Substance: DIPHENHYDRAMINE
     Indication: Urticaria

REACTIONS (2)
  - Hypersensitivity [Recovering/Resolving]
  - Infusion site urticaria [Recovering/Resolving]

NARRATIVE: CASE EVENT DATE: 20250907
